FAERS Safety Report 7502701-5 (Version None)
Quarter: 2011Q2

REPORT INFORMATION
  Report Type: 
  Country: None (occurrence: None)
  Receive Date: 20110525
  Receipt Date: 20110517
  Transmission Date: 20111010
  Serious: Yes (Hospitalization)
  Sender: FDA-Public Use
  Company Number: JP-PFIZER INC-2011109414

PATIENT
  Age: 68 Year
  Sex: Male
  Weight: 60 kg

DRUGS (12)
  1. DIOVAN [Concomitant]
     Dosage: 80 MG, 1X/DAY
     Route: 048
  2. LEVOTHYROXINE SODIUM [Concomitant]
     Dosage: 100 MG, 1X/DAY
     Route: 048
  3. DEPAS [Concomitant]
     Dosage: 0.5 MG, 1X/DAY
     Route: 048
  4. TEMSIROLIMUS [Suspect]
     Indication: RENAL CELL CARCINOMA
     Dosage: 25 MG, WEEKLY
     Dates: start: 20101206, end: 20101227
  5. TORASEMIDE [Concomitant]
     Dosage: 4 MG, 1X/DAY
     Route: 048
  6. LAC B [Concomitant]
     Dosage: 1 G, 3X/DAY
     Route: 048
  7. LANSOPRAZOLE [Concomitant]
     Dosage: 15 MG, 1X/DAY
     Route: 048
  8. NEUFAN [Concomitant]
     Dosage: 100 MG, 1X/DAY
     Route: 048
  9. TEMSIROLIMUS [Suspect]
     Dosage: 25 MG, WEEKLY
     Dates: start: 20110228, end: 20110228
  10. GLYCYRON [Concomitant]
     Dosage: 35 MG, 3X/DAY
     Route: 048
  11. TEMSIROLIMUS [Suspect]
     Dosage: 25 MG, WEEKLY
     Dates: start: 20110104, end: 20110214
  12. DIPHENHYDRAMINE HYDROCHLORIDE [Concomitant]
     Indication: PROPHYLAXIS
     Dosage: 50 MG, WEEKLY
     Route: 048

REACTIONS (1)
  - PLEURAL EFFUSION [None]
